FAERS Safety Report 13744835 (Version 4)
Quarter: 2018Q2

REPORT INFORMATION
  Report Type: Spontaneous
  Country: US (occurrence: US)
  Receive Date: 20170712
  Receipt Date: 20180517
  Transmission Date: 20180711
  Serious: No
  Sender: FDA-Public Use
  Company Number: US-PFIZER INC-2017298663

PATIENT
  Age: 60 Year
  Sex: Female

DRUGS (3)
  1. XELJANZ [Suspect]
     Active Substance: TOFACITINIB CITRATE
     Indication: RHEUMATOID ARTHRITIS
     Dosage: 5 MG, 2X/DAY
     Route: 048
     Dates: start: 20170609
  2. XELJANZ [Suspect]
     Active Substance: TOFACITINIB CITRATE
     Indication: MULTIPLE SCLEROSIS
     Dosage: 5 MG, 2X/DAY
     Dates: start: 20170531
  3. METHOTREXATE. [Concomitant]
     Active Substance: METHOTREXATE
     Dosage: UNK

REACTIONS (10)
  - Malaise [Unknown]
  - Seasonal allergy [Recovering/Resolving]
  - Vertigo [Recovering/Resolving]
  - Drug ineffective [Unknown]
  - Gastrooesophageal reflux disease [Recovering/Resolving]
  - Nasopharyngitis [Recovering/Resolving]
  - Condition aggravated [Recovering/Resolving]
  - Headache [Recovering/Resolving]
  - Fatigue [Not Recovered/Not Resolved]
  - Gastric disorder [Unknown]

NARRATIVE: CASE EVENT DATE: 2017
